FAERS Safety Report 5784020-0 (Version None)
Quarter: 2008Q2

REPORT INFORMATION
  Report Type: 
  Country: None (occurrence: None)
  Receive Date: 20080605
  Receipt Date: 20080331
  Transmission Date: 20081010
  Serious: No
  Sender: FDA-Public Use
  Company Number: A0718051A

PATIENT
  Age: 58 Year
  Sex: Female

DRUGS (4)
  1. ALLI [Suspect]
  2. VICODIN [Concomitant]
  3. SLEEPING PILL [Concomitant]
  4. MULTI-VITAMIN [Concomitant]

REACTIONS (2)
  - PHARMACEUTICAL PRODUCT COMPLAINT [None]
  - RECTAL DISCHARGE [None]
